FAERS Safety Report 17853256 (Version 1)
Quarter: 2020Q2

REPORT INFORMATION
  Report Type: Spontaneous
  Country: US (occurrence: US)
  Receive Date: 20200603
  Receipt Date: 20200603
  Transmission Date: 20200714
  Serious: No
  Sender: FDA-Public Use
  Company Number: US-STRIDES ARCOLAB LIMITED-2020SP005007

PATIENT
  Age: 6 Decade
  Sex: Male

DRUGS (2)
  1. RUTOSIDE TRIHYDRATE [Suspect]
     Active Substance: RUTOSIDE TRIHYDRATE
     Indication: CAPILLARITIS
     Dosage: 100 MILLIGRAM DAILY
     Route: 048
  2. TRIAMCINOLONE ACETONIDE. [Suspect]
     Active Substance: TRIAMCINOLONE ACETONIDE
     Indication: CAPILLARITIS
     Dosage: BID, 0.1 PERCENT TOPICAL CREAM TWICE DAILY
     Route: 061

REACTIONS (1)
  - Drug ineffective [Unknown]
